FAERS Safety Report 14818968 (Version 8)
Quarter: 2018Q4

REPORT INFORMATION
  Report Type: Spontaneous
  Country: PT (occurrence: PT)
  Receive Date: 20180427
  Receipt Date: 20181023
  Transmission Date: 20190204
  Serious: Yes (Other)
  Sender: FDA-Public Use
  Company Number: PT-AUROBINDO-AUR-APL-2018-022334

PATIENT
  Age: 58 Year
  Sex: Male

DRUGS (6)
  1. LORAZEPAM. [Concomitant]
     Active Substance: LORAZEPAM
     Indication: DEPRESSION
     Dosage: UNK
     Route: 065
  2. SERTRALINE [Concomitant]
     Active Substance: SERTRALINE HYDROCHLORIDE
     Indication: DEPRESSION
     Dosage: 50 MILLIGRAM
     Route: 065
  3. ESCITALOPRAM [Suspect]
     Active Substance: ESCITALOPRAM OXALATE
     Indication: DEPRESSION
     Dosage: 10 MILLIGRAM
     Route: 065
     Dates: start: 201506, end: 201510
  4. VENLAFAXINE [Suspect]
     Active Substance: VENLAFAXINE HYDROCHLORIDE
     Indication: DEPRESSION
     Dosage: UNK
     Route: 065
     Dates: end: 201609
  5. MIRTAZAPINE 15MG [Suspect]
     Active Substance: MIRTAZAPINE
     Indication: DEPRESSION
     Dosage: 15 MILLIGRAM
     Route: 065
     Dates: start: 201609
  6. BUPROPION. [Concomitant]
     Active Substance: BUPROPION
     Indication: DEPRESSION
     Dosage: UNK
     Route: 065

REACTIONS (17)
  - Depressed mood [Recovering/Resolving]
  - Gastritis [Recovered/Resolved]
  - Parkinsonism [Recovered/Resolved]
  - Palpitations [Recovered/Resolved]
  - Drug ineffective [Recovered/Resolved]
  - Chest pain [Recovered/Resolved]
  - Sleep disorder [Recovered/Resolved]
  - Asthenia [Recovering/Resolving]
  - Psychiatric symptom [Recovering/Resolving]
  - Decreased appetite [Recovering/Resolving]
  - Tremor [Recovered/Resolved]
  - Sleep disorder [Recovered/Resolved]
  - Drug intolerance [Recovered/Resolved]
  - Anhedonia [Recovering/Resolving]
  - Abdominal pain upper [Recovered/Resolved]
  - Dysphonia [Recovered/Resolved]
  - Apathy [Recovered/Resolved]

NARRATIVE: CASE EVENT DATE: 201510
